FAERS Safety Report 5892215-0 (Version None)
Quarter: 2008Q3

REPORT INFORMATION
  Report Type: 
  Country: None (occurrence: None)
  Receive Date: 20080918
  Receipt Date: 20080904
  Transmission Date: 20090109
  Serious: Yes (Hospitalization)
  Sender: FDA-Public Use
  Company Number: 107#08#2008-04603

PATIENT
  Age: 79 Year
  Sex: Male

DRUGS (2)
  1. VERAPAMIL [Suspect]
     Indication: DRUG USE FOR UNKNOWN INDICATION
     Dosage: 6.0 - 7.2 G
  2. DIGOXIN [Concomitant]

REACTIONS (9)
  - ATRIAL FIBRILLATION [None]
  - BLOOD PRESSURE DECREASED [None]
  - CARDIOACTIVE DRUG LEVEL BELOW THERAPEUTIC [None]
  - COMA [None]
  - DRUG TOXICITY [None]
  - NODAL ARRHYTHMIA [None]
  - OLIGURIA [None]
  - PNEUMONIA ASPIRATION [None]
  - RENAL FAILURE ACUTE [None]
